FAERS Safety Report 9227504 (Version 2)
Quarter: 2013Q4

REPORT INFORMATION
  Report Type: Spontaneous
  Country: US (occurrence: None)
  Receive Date: 20121004
  Receipt Date: 20131226
  Transmission Date: 20140711
  Serious: Yes (Other)
  Sender: FDA-Public Use
  Company Number: PHEH2012US013560

PATIENT
  Age: 54 Year
  Sex: Female

DRUGS (7)
  1. COMBIPATCH [Suspect]
     Dosage: 1  DF
     Route: 062
  2. PENTASA (MESALAZINE) [Concomitant]
  3. ZYRTEC (CETIRIZINE HYDROCHLORIDE) [Concomitant]
  4. SINGULAIR (MONTELUKAST) 10MG [Concomitant]
  5. DEVROM [Concomitant]
  6. FOLIC ACID [Concomitant]
  7. CIPRO [Concomitant]

REACTIONS (1)
  - Metrorrhagia [None]
